FAERS Safety Report 5200449-3 (Version None)
Quarter: 2006Q4

REPORT INFORMATION
  Report Type: 
  Country: None (occurrence: None)
  Receive Date: 20061016
  Receipt Date: 20060821
  Transmission Date: 20070319
  Serious: No
  Sender: FDA-Public Use
  Company Number: 2006SP003067

PATIENT
  Age: 78 Year
  Sex: Female

DRUGS (5)
  1. LUNESTA [Suspect]
     Indication: SLEEP DISORDER
     Dosage: 3  MG; HS; ORAL
     Route: 048
     Dates: start: 20051201
  2. METOPROLOL SUCCINATE [Concomitant]
  3. SYNTHROID [Concomitant]
  4. LECITHIN [Concomitant]
  5. OXYGEN [Concomitant]

REACTIONS (1)
  - MIDDLE INSOMNIA [None]
